FAERS Safety Report 7227996-7 (Version None)
Quarter: 2011Q1

REPORT INFORMATION
  Report Type: 
  Country: None (occurrence: None)
  Receive Date: 20110112
  Receipt Date: 20110112
  Transmission Date: 20110831
  Serious: Yes (Other)
  Sender: FDA-Public Use
  Company Number: None

PATIENT
  Age: 31 Year
  Sex: Female
  Weight: 103.4201 kg

DRUGS (9)
  1. ZYRTEC [Concomitant]
  2. SINGULAIR [Suspect]
     Dates: start: 20101030, end: 20101207
  3. BENADRYL [Concomitant]
  4. SUDAFED 12 HOUR [Concomitant]
  5. IRON [Concomitant]
  6. MUCINEX [Concomitant]
  7. ZANTAC [Concomitant]
  8. FLONASE [Concomitant]
  9. XOPENEX [Concomitant]

REACTIONS (4)
  - IRRITABILITY [None]
  - MOOD SWINGS [None]
  - SELF-INJURIOUS IDEATION [None]
  - AGGRESSION [None]
